FAERS Safety Report 20407860 (Version 1)
Quarter: 2022Q1

REPORT INFORMATION
  Report Type: Spontaneous
  Country: US (occurrence: US)
  Receive Date: 20220201
  Receipt Date: 20220201
  Transmission Date: 20220423
  Serious: No
  Sender: FDA-Public Use
  Company Number: US-APOTEX-2022AP002803

PATIENT
  Sex: Male

DRUGS (1)
  1. FLUTICASONE [Suspect]
     Active Substance: FLUTICASONE
     Indication: Product used for unknown indication
     Dosage: 4 DOSAGE FORM, QD (2 SPRAYS IN EACH NOSTRIL)
     Route: 045

REACTIONS (2)
  - Inappropriate schedule of product administration [Unknown]
  - Product delivery mechanism issue [Unknown]
